FAERS Safety Report 7192690-8 (Version None)
Quarter: 2010Q4

REPORT INFORMATION
  Report Type: 
  Country: None (occurrence: None)
  Receive Date: 20101223
  Receipt Date: 20101220
  Transmission Date: 20110411
  Serious: Yes (Hospitalization)
  Sender: FDA-Public Use
  Company Number: DE-SANOFI-AVENTIS-2010SA076771

PATIENT
  Age: 63 Year
  Sex: Male
  Weight: 120 kg

DRUGS (7)
  1. MULTAQ [Suspect]
     Route: 048
     Dates: start: 20101210, end: 20101215
  2. BISOPROLOL [Concomitant]
     Indication: ATRIAL FIBRILLATION
     Route: 048
  3. BISOPROLOL [Concomitant]
     Route: 048
  4. TORSEMIDE [Concomitant]
     Route: 048
  5. DIGITOXIN INJ [Concomitant]
     Route: 048
  6. DIGITOXIN INJ [Concomitant]
     Indication: ATRIAL FIBRILLATION
     Route: 048
  7. HYDROCHLOROTHIAZIDE/RAMIPRIL [Concomitant]
     Route: 048

REACTIONS (1)
  - VENTRICULAR TACHYCARDIA [None]
